FAERS Safety Report 7658126-5 (Version None)
Quarter: 2011Q3

REPORT INFORMATION
  Report Type: 
  Country: None (occurrence: None)
  Receive Date: 20110805
  Receipt Date: 20110728
  Transmission Date: 20111222
  Serious: Yes (Other)
  Sender: FDA-Public Use
  Company Number: US-BAYER-2011-062500

PATIENT
  Age: 63 Year
  Sex: Female

DRUGS (11)
  1. BETASERON [Suspect]
     Indication: RELAPSING-REMITTING MULTIPLE SCLEROSIS
     Dosage: 1 ML, QOD
     Dates: start: 19990101, end: 20110709
  2. SIMVASTATIN [Concomitant]
  3. OMEPRAZOLE [Concomitant]
  4. AMPYRA [Concomitant]
     Indication: GAIT DISTURBANCE
     Dosage: 10 MG, BID
     Dates: start: 20110721
  5. GABAPENTIN [Concomitant]
  6. DIOVAN [Concomitant]
  7. BACLOFEN [Concomitant]
  8. DIAZEPAM [Concomitant]
  9. BACTRIM [Concomitant]
  10. ATENOLOL [Concomitant]
  11. FLUOXETINE [Concomitant]

REACTIONS (7)
  - FALL [None]
  - TREMOR [None]
  - LYME DISEASE [None]
  - PYREXIA [None]
  - HEADACHE [None]
  - CHILLS [None]
  - SINUS DISORDER [None]
